FAERS Safety Report 19783382 (Version 3)
Quarter: 2022Q3

REPORT INFORMATION
  Report Type: Spontaneous
  Country: CA (occurrence: CA)
  Receive Date: 20210903
  Receipt Date: 20220715
  Transmission Date: 20221027
  Serious: Yes (Life-Threatening, Hospitalization)
  Sender: FDA-Public Use
  Company Number: CA-JNJFOC-20210856113

PATIENT
  Age: 36 Year
  Sex: Female

DRUGS (23)
  1. ULTRAM [Suspect]
     Active Substance: TRAMADOL HYDROCHLORIDE
     Indication: Musculoskeletal pain
     Route: 048
  2. ULTRAM [Suspect]
     Active Substance: TRAMADOL HYDROCHLORIDE
     Indication: Back pain
  3. ULTRAM [Suspect]
     Active Substance: TRAMADOL HYDROCHLORIDE
     Indication: Pain
  4. ULTRAM [Suspect]
     Active Substance: TRAMADOL HYDROCHLORIDE
     Indication: Analgesic therapy
  5. ACETAMINOPHEN [Suspect]
     Active Substance: ACETAMINOPHEN
     Indication: Musculoskeletal pain
     Route: 048
  6. ACETAMINOPHEN [Suspect]
     Active Substance: ACETAMINOPHEN
     Indication: Back pain
     Route: 065
  7. ACETAMINOPHEN [Suspect]
     Active Substance: ACETAMINOPHEN
     Indication: Analgesic therapy
  8. ACETAMINOPHEN [Suspect]
     Active Substance: ACETAMINOPHEN
     Indication: Pain
  9. AMITRIPTYLINE HYDROCHLORIDE\PERPHENAZINE [Suspect]
     Active Substance: AMITRIPTYLINE HYDROCHLORIDE\PERPHENAZINE
     Indication: Musculoskeletal pain
     Route: 065
  10. AMITRIPTYLINE HYDROCHLORIDE\PERPHENAZINE [Suspect]
     Active Substance: AMITRIPTYLINE HYDROCHLORIDE\PERPHENAZINE
     Indication: Back pain
  11. DULOXETINE [Suspect]
     Active Substance: DULOXETINE
     Indication: Musculoskeletal pain
     Route: 048
  12. DULOXETINE [Suspect]
     Active Substance: DULOXETINE
     Indication: Back pain
  13. PREGABALIN [Suspect]
     Active Substance: PREGABALIN
     Indication: Musculoskeletal pain
     Route: 048
  14. PREGABALIN [Suspect]
     Active Substance: PREGABALIN
     Indication: Pain
  15. PREGABALIN [Suspect]
     Active Substance: PREGABALIN
     Indication: Analgesic therapy
  16. TRIAZOLAM [Suspect]
     Active Substance: TRIAZOLAM
     Indication: Musculoskeletal pain
     Route: 048
  17. TRIAZOLAM [Suspect]
     Active Substance: TRIAZOLAM
     Indication: Back pain
     Route: 065
  18. TRIAZOLAM [Suspect]
     Active Substance: TRIAZOLAM
     Indication: Pain
     Route: 065
  19. TRIAZOLAM [Suspect]
     Active Substance: TRIAZOLAM
     Indication: Analgesic therapy
  20. AMITRIPTYLINE [Suspect]
     Active Substance: AMITRIPTYLINE
     Indication: Pain
     Route: 065
  21. AMITRIPTYLINE [Suspect]
     Active Substance: AMITRIPTYLINE
     Indication: Analgesic therapy
     Route: 048
  22. DULOXETINE HYDROCHLORIDE [Suspect]
     Active Substance: DULOXETINE HYDROCHLORIDE
     Indication: Pain
     Route: 048
  23. DULOXETINE HYDROCHLORIDE [Suspect]
     Active Substance: DULOXETINE HYDROCHLORIDE
     Indication: Analgesic therapy

REACTIONS (2)
  - Serotonin syndrome [Recovered/Resolved]
  - Labelled drug-drug interaction issue [Recovered/Resolved]
